FAERS Safety Report 18791397 (Version 1)
Quarter: 2021Q1

REPORT INFORMATION
  Report Type: Spontaneous
  Country: US (occurrence: US)
  Receive Date: 20210126
  Receipt Date: 20210126
  Transmission Date: 20210419
  Serious: Yes (Hospitalization)
  Sender: FDA-Public Use
  Company Number: US-FRESENIUS MEDICAL CARE RENAL THERAPIES GROUP-FMC-2101-000082

PATIENT
  Age: 21 Year
  Sex: Male
  Weight: 92 kg

DRUGS (1)
  1. DELFLEX WITH DEXTROSE 2.5% LOW MAGNESIUM LOW CALCIUM [Suspect]
     Active Substance: CALCIUM CHLORIDE\DEXTROSE\MAGNESIUM CHLORIDE\SODIUM CHLORIDE\SODIUM LACTATE
     Indication: END STAGE RENAL DISEASE
     Dosage: 3000 ML FOR 4 CYCLES, LAST FILL OF 2600 ML, NO DAYTIME EXCHANGE, FOR APPROXIMATE 1.5 YEARS
     Route: 033

REACTIONS (2)
  - Seizure [Recovered/Resolved]
  - Peritonitis bacterial [Recovered/Resolved]
